FAERS Safety Report 20372105 (Version 1)
Quarter: 2022Q1

REPORT INFORMATION
  Report Type: 
  Country: IT (occurrence: IT)
  Receive Date: 20220124
  Receipt Date: 20220124
  Transmission Date: 20220424
  Serious: Yes (Death, Other)
  Sender: FDA-Public Use
  Company Number: IT-Stemline Therapeutics, Inc.-2022ST000008

PATIENT

DRUGS (2)
  1. ELZONRIS [Suspect]
     Active Substance: TAGRAXOFUSP-ERZS
     Indication: Acute myeloid leukaemia
     Dosage: 1-3 DAY/CYCLE AT APPROVED DOSE; CYCLE 1
     Route: 042
  2. ELZONRIS [Suspect]
     Active Substance: TAGRAXOFUSP-ERZS
     Dosage: 1-3 DAY/CYCLE AT APPROVED DOSE; CYCLE 2
     Route: 042

REACTIONS (2)
  - Tumour lysis syndrome [Fatal]
  - Off label use [Unknown]
